FAERS Safety Report 17553840 (Version 1)
Quarter: 2020Q1

REPORT INFORMATION
  Report Type: Spontaneous
  Country: US (occurrence: US)
  Receive Date: 20200317
  Receipt Date: 20200317
  Transmission Date: 20200409
  Serious: No
  Sender: FDA-Public Use
  Company Number: US-INCYTE CORPORATION-2020IN002400

PATIENT

DRUGS (2)
  1. JAKAFI [Suspect]
     Active Substance: RUXOLITINIB
     Indication: DRUG THERAPY
     Dosage: 10 MILLIGRAM (TWO 5 MG TABLETS), BID
     Route: 048
  2. JAKAFI [Suspect]
     Active Substance: RUXOLITINIB
     Dosage: 20 MILLIGRAM (FOUR 5 MG TABLETS), BID
     Route: 065

REACTIONS (4)
  - Drug ineffective for unapproved indication [Unknown]
  - Anxiety [Unknown]
  - Off label use [Unknown]
  - Fatigue [Unknown]
